FAERS Safety Report 22337180 (Version 2)
Quarter: 2024Q2

REPORT INFORMATION
  Report Type: Spontaneous
  Country: US (occurrence: None)
  Receive Date: 20230518
  Receipt Date: 20240524
  Transmission Date: 20240716
  Serious: No
  Sender: FDA-Public Use
  Company Number: US-ROCHE-3320569

PATIENT
  Age: 80 Year
  Sex: Female

DRUGS (13)
  1. ACTEMRA [Suspect]
     Active Substance: TOCILIZUMAB
     Indication: Rheumatoid arthritis
     Dosage: 162 MG 0.9 ML SQ
     Route: 058
     Dates: start: 20230321
  2. ACTEMRA [Suspect]
     Active Substance: TOCILIZUMAB
  3. ACTEMRA [Suspect]
     Active Substance: TOCILIZUMAB
     Dosage: 162 MG 0.9 ML SQ
     Route: 058
     Dates: start: 20230404
  4. ACTEMRA [Suspect]
     Active Substance: TOCILIZUMAB
  5. CARBIDOPA [Concomitant]
     Active Substance: CARBIDOPA
     Dosage: 25-100 MG
  6. FAMOTIDINE [Concomitant]
     Active Substance: FAMOTIDINE
  7. FOLIC ACID [Concomitant]
     Active Substance: FOLIC ACID
  8. MYRBETRIQ [Concomitant]
     Active Substance: MIRABEGRON
  9. OTREXUP [Concomitant]
     Active Substance: METHOTREXATE
     Dosage: 25 MG/0.4 ML
  10. PREDNISONE [Concomitant]
     Active Substance: PREDNISONE
  11. PRILOSEC [Concomitant]
     Active Substance: OMEPRAZOLE MAGNESIUM
  12. TAMSULOSIN [Concomitant]
     Active Substance: TAMSULOSIN
  13. GABAPENTIN [Concomitant]
     Active Substance: GABAPENTIN

REACTIONS (6)
  - Arthritis [Not Recovered/Not Resolved]
  - Back pain [Not Recovered/Not Resolved]
  - Pain in extremity [Not Recovered/Not Resolved]
  - Nerve compression [Not Recovered/Not Resolved]
  - Gait disturbance [Not Recovered/Not Resolved]
  - Ill-defined disorder [Not Recovered/Not Resolved]
